FAERS Safety Report 10073614 (Version 2)
Quarter: 2014Q2

REPORT INFORMATION
  Report Type: Report from Study
  Country: JP (occurrence: JP)
  Receive Date: 20140411
  Receipt Date: 20140516
  Transmission Date: 20141212
  Serious: Yes (Hospitalization)
  Sender: FDA-Public Use
  Company Number: JP-SHIRE-JP201401151

PATIENT
  Age: 66 Year
  Sex: Female

DRUGS (27)
  1. 405 (LANTHANUM CARBONATE) [Suspect]
     Indication: HYPERPHOSPHATAEMIA
     Dosage: 750 MG, UNKNOWN
     Route: 048
     Dates: start: 20100601, end: 20120612
  2. 405 (LANTHANUM CARBONATE) [Suspect]
     Dosage: 1500 MG, UNKNOWN
     Route: 048
     Dates: start: 20100513, end: 20100531
  3. 405 (LANTHANUM CARBONATE) [Suspect]
     Dosage: 750 MG, UNKNOWN (PER DAY)
     Route: 048
     Dates: start: 20090626, end: 20100512
  4. CARTARETIN [Suspect]
     Indication: HYPERPHOSPHATAEMIA
     Dosage: 3 G, UNKNOWN
     Route: 048
  5. ROCALTROL [Suspect]
     Indication: PRODUCT USED FOR UNKNOWN INDICATION
     Dosage: 3.0 ?G, 1X/WEEK
     Route: 042
     Dates: start: 2012, end: 20120518
  6. ROCALTROL [Suspect]
     Dosage: 1.5 ?G, 1X/WEEK
     Route: 042
     Dates: start: 20120519
  7. ROCALTROL [Suspect]
     Dosage: 1.5 ?G, 1X/WEEK
     Route: 042
     Dates: start: 20120410, end: 2012
  8. ROCALTROL [Suspect]
     Dosage: 2.5 ?G, 1X/WEEK
     Route: 042
     Dates: start: 20101106, end: 20120409
  9. ROCALTROL [Suspect]
     Dosage: 1.5 ?G, 1X/WEEK
     Route: 042
     Dates: start: 20091008
  10. ROCALTROL [Suspect]
     Dosage: 2.5 ?G, 1X/WEEK
     Route: 042
     Dates: start: 20080617, end: 20091005
  11. RIVOTRIL [Suspect]
     Indication: RESTLESS LEGS SYNDROME
     Dosage: 1 MG, UNKNOWN
     Route: 048
     Dates: start: 20110806, end: 20110810
  12. RIVOTRIL [Suspect]
     Dosage: 0.5 MG, UNKNOWN
     Route: 048
     Dates: start: 20110811, end: 20110831
  13. BI SIFROL [Suspect]
     Indication: RESTLESS LEGS SYNDROME
     Dosage: 0.125 MG, UNKNOWN
     Route: 048
     Dates: start: 20110901, end: 20110907
  14. METHYCOBAL [Concomitant]
     Indication: PRODUCT USED FOR UNKNOWN INDICATION
     Dosage: 1500 ?G, UNKNOWN
     Route: 048
  15. GASMOTIN [Concomitant]
     Indication: PRODUCT USED FOR UNKNOWN INDICATION
     Dosage: 15 MG, UNKNOWN
     Route: 048
  16. MUCOSTA [Concomitant]
     Indication: PRODUCT USED FOR UNKNOWN INDICATION
     Dosage: 300 MG, UNKNOWN
     Route: 048
  17. PURSENNID                          /00571902/ [Concomitant]
     Indication: PRODUCT USED FOR UNKNOWN INDICATION
     Dosage: 48 MG, UNKNOWN
     Route: 048
  18. PLETAAL [Concomitant]
     Indication: PRODUCT USED FOR UNKNOWN INDICATION
     Dosage: 50 MG, UNKNOWN
     Route: 048
  19. PARIET [Concomitant]
     Indication: PRODUCT USED FOR UNKNOWN INDICATION
     Dosage: 10 MG, UNKNOWN
     Route: 048
  20. OTHER DRUGS FOR CONSTIPATION [Concomitant]
     Indication: PRODUCT USED FOR UNKNOWN INDICATION
     Dosage: 7.5 G, UNKNOWN
     Route: 048
  21. MICARDIS [Concomitant]
     Indication: HYPERTENSION
     Dosage: 40 MG, UNKNOWN
     Route: 048
  22. MICARDIS [Concomitant]
     Dosage: 80 MG, UNKNOWN
     Route: 048
     Dates: start: 20091005, end: 20100423
  23. MICARDIS [Concomitant]
     Dosage: 40 MG, UNKNOWN
     Route: 048
     Dates: start: 20100424
  24. AMLODIN [Concomitant]
     Indication: PRODUCT USED FOR UNKNOWN INDICATION
     Dosage: 10 MG, UNKNOWN
     Route: 048
  25. LOCHOL                             /01224502/ [Concomitant]
     Indication: PRODUCT USED FOR UNKNOWN INDICATION
     Dosage: 10 MG, UNKNOWN
     Route: 048
  26. CARDENALIN [Concomitant]
     Indication: PRODUCT USED FOR UNKNOWN INDICATION
     Dosage: 6 MG, UNKNOWN
     Route: 048
     Dates: end: 20100414
  27. CARDENALIN [Concomitant]
     Dosage: 2 MG, UNKNOWN
     Route: 048
     Dates: start: 20100415

REACTIONS (1)
  - Aortic valve stenosis [Recovering/Resolving]
